FAERS Safety Report 21260906 (Version 1)
Quarter: 2022Q3

REPORT INFORMATION
  Report Type: Spontaneous
  Country: US (occurrence: US)
  Receive Date: 20220826
  Receipt Date: 20220826
  Transmission Date: 20221027
  Serious: No
  Sender: FDA-Public Use
  Company Number: US-009507513-2208USA004878

PATIENT
  Age: 78 Year
  Sex: Male

DRUGS (12)
  1. STROMECTOL [Suspect]
     Active Substance: IVERMECTIN
     Indication: Acarodermatitis
     Dosage: 1 DOSE OF IVERMECTIN, 0.2 MG/KG
     Route: 048
  2. FAMCICLOVIR [Concomitant]
     Active Substance: FAMCICLOVIR
     Indication: Herpes simplex
     Dosage: 500 MG TWICE DAILY
     Route: 048
  3. PERMETHRIN [Concomitant]
     Active Substance: PERMETHRIN
     Route: 061
  4. CARBIDOPA\LEVODOPA [Concomitant]
     Active Substance: CARBIDOPA\LEVODOPA
  5. ROPINIROLE [Concomitant]
     Active Substance: ROPINIROLE
  6. DONEPEZIL [Concomitant]
     Active Substance: DONEPEZIL
  7. PRIMIDONE [Concomitant]
     Active Substance: PRIMIDONE
  8. JANUVIA [Concomitant]
     Active Substance: SITAGLIPTIN PHOSPHATE
  9. DIPHENHYDRAMINE [Concomitant]
     Active Substance: DIPHENHYDRAMINE
     Indication: Pruritus
  10. PREGABALIN [Concomitant]
     Active Substance: PREGABALIN
     Indication: Pain
  11. VANCOMYCIN [Concomitant]
     Active Substance: VANCOMYCIN
     Indication: Antibiotic therapy
  12. CEFEPIME [Concomitant]
     Active Substance: CEFEPIME HYDROCHLORIDE
     Indication: Antibiotic therapy

REACTIONS (1)
  - Product use in unapproved indication [Unknown]
